FAERS Safety Report 17637072 (Version 1)
Quarter: 2020Q2

REPORT INFORMATION
  Report Type: Spontaneous
  Country: US (occurrence: US)
  Receive Date: 20200406
  Receipt Date: 20200406
  Transmission Date: 20200713
  Serious: No
  Sender: FDA-Public Use
  Company Number: None

PATIENT
  Age: 9 Year
  Sex: Female

DRUGS (1)
  1. NEUPOGEN [Suspect]
     Active Substance: FILGRASTIM
     Dosage: ?          OTHER STRENGTH:300 UG/ML;?
     Route: 058
     Dates: start: 202003

REACTIONS (1)
  - Product storage error [None]

NARRATIVE: CASE EVENT DATE: 20200406
